FAERS Safety Report 9781221 (Version 2)
Quarter: 2013Q4

REPORT INFORMATION
  Report Type: Spontaneous
  Country: US (occurrence: US)
  Receive Date: 20131224
  Receipt Date: 20131224
  Transmission Date: 20140711
  Serious: Yes (Other)
  Sender: FDA-Public Use
  Company Number: US-ROCHE-1304643

PATIENT
  Age: 67 Year
  Sex: Female
  Weight: 105.06 kg

DRUGS (3)
  1. KADCYLA [Suspect]
     Indication: BREAST CANCER METASTATIC
     Dosage: TEMPORARILY HELD
     Route: 042
     Dates: start: 20130530
  2. TAMOXIFEN [Concomitant]
     Indication: BREAST CANCER
     Route: 048
     Dates: start: 20130418
  3. ZOMETA [Concomitant]
     Indication: BREAST CANCER
     Route: 042
     Dates: start: 20120628

REACTIONS (1)
  - Paronychia [Recovering/Resolving]
